FAERS Safety Report 14601065 (Version 1)
Quarter: 2018Q1

REPORT INFORMATION
  Report Type: Report from Study
  Country: US (occurrence: US)
  Receive Date: 20180305
  Receipt Date: 20180305
  Transmission Date: 20180509
  Serious: Yes (Other)
  Sender: FDA-Public Use
  Company Number: US-ACTELION-A-US2017-160494

PATIENT
  Age: 75 Year
  Sex: Female
  Weight: 61.22 kg

DRUGS (3)
  1. OPSUMIT [Suspect]
     Active Substance: MACITENTAN
     Indication: PULMONARY ARTERIAL HYPERTENSION
     Dosage: 5 MG, QD
     Route: 048
  2. OPSUMIT [Suspect]
     Active Substance: MACITENTAN
     Dosage: 10 MG, QD
     Route: 048
  3. ADCIRCA [Suspect]
     Active Substance: TADALAFIL
     Indication: PRODUCT USED FOR UNKNOWN INDICATION
     Route: 065

REACTIONS (9)
  - Limb asymmetry [Unknown]
  - Hypotension [Unknown]
  - Asthenia [Unknown]
  - Spinal deformity [Unknown]
  - Fungal infection [Unknown]
  - Fatigue [Unknown]
  - Vaginal discharge [Unknown]
  - Oral candidiasis [Unknown]
  - Rash pruritic [Unknown]
